FAERS Safety Report 10032872 (Version 2)
Quarter: 2014Q2

REPORT INFORMATION
  Report Type: Spontaneous
  Country: IT (occurrence: IT)
  Receive Date: 20140324
  Receipt Date: 20140401
  Transmission Date: 20141212
  Serious: Yes (Other)
  Sender: FDA-Public Use
  Company Number: IT-DSJP-DSE-2014-101551

PATIENT
  Sex: 0

DRUGS (2)
  1. PLAUNAC 20 MG [Suspect]
     Indication: HYPERTENSION
     Dosage: 20 MG, QD
     Route: 048
     Dates: start: 20140211
  2. LIBRADIN [Suspect]
     Indication: HYPERTENSION
     Dosage: 20 MG, QD
     Route: 048
     Dates: start: 20140211, end: 20140311

REACTIONS (2)
  - Presyncope [Recovered/Resolved]
  - Orthostatic hypotension [Recovered/Resolved]
